FAERS Safety Report 8042943-6 (Version None)
Quarter: 2012Q1

REPORT INFORMATION
  Report Type: 
  Country: None (occurrence: None)
  Receive Date: 20120112
  Receipt Date: 20120109
  Transmission Date: 20120608
  Serious: Yes (Other)
  Sender: FDA-Public Use
  Company Number: US-PFIZER INC-2012006904

PATIENT
  Sex: Male

DRUGS (3)
  1. EFFEXOR XR [Suspect]
     Indication: DEPRESSION
     Dosage: UNK
     Dates: start: 20111108
  2. NEURONTIN [Suspect]
     Indication: DEPRESSION
     Dosage: UNKNOWN
  3. WELLBUTRIN [Suspect]
     Indication: DEPRESSION
     Dosage: UNK
     Dates: end: 20111101

REACTIONS (7)
  - EYE DISCHARGE [None]
  - FEELING ABNORMAL [None]
  - DRUG INEFFECTIVE [None]
  - VISION BLURRED [None]
  - EYELID BOIL [None]
  - SWOLLEN TEAR DUCT [None]
  - DEPRESSION [None]
